FAERS Safety Report 4282344-X (Version None)
Quarter: 2004Q1

REPORT INFORMATION
  Report Type: 
  Country: None (occurrence: None)
  Receive Date: 20040130
  Receipt Date: 20040119
  Transmission Date: 20041129
  Serious: Yes (Hospitalization)
  Sender: FDA-Public Use
  Company Number: WAES 0401AUT00004

PATIENT
  Sex: Female

DRUGS (4)
  1. [COMPOSITION UNSPECIFIED] [Concomitant]
     Indication: ASTHMA
  2. FLUTICASONE PROPIONATE AND SALMETEROL XINAFOATE [Suspect]
     Indication: ASTHMA
  3. SINGULAIR [Suspect]
     Indication: ASTHMA
     Route: 048
     Dates: start: 20020101, end: 20020101
  4. SINGULAIR [Suspect]
     Route: 048
     Dates: start: 20030901

REACTIONS (2)
  - ALLERGIC GRANULOMATOUS ANGIITIS [None]
  - DRUG INTERACTION [None]
